FAERS Safety Report 8328463-X (Version None)
Quarter: 2012Q2

REPORT INFORMATION
  Report Type: 
  Country: None (occurrence: None)
  Receive Date: 20120502
  Receipt Date: 20120502
  Transmission Date: 20120825
  Serious: Yes (Other)
  Sender: FDA-Public Use
  Company Number: None

PATIENT
  Age: 50 Year
  Weight: 78.471 kg

DRUGS (1)
  1. LEVOFLOXACIN [Suspect]
     Indication: CELLULITIS
     Dosage: |DOSAGETEXT: 500 MG||STRENGTH: 500 MG||FREQ: ONCE A DAY||ROUTE: ORAL| DURATION: 10 DAYS -FULL COURSE
     Route: 048
     Dates: start: 20120502

REACTIONS (7)
  - TENDON PAIN [None]
  - SWELLING [None]
  - SKIN WARM [None]
  - ERYTHEMA [None]
  - CELLULITIS [None]
  - DISEASE RECURRENCE [None]
  - NEUROPATHY PERIPHERAL [None]
